FAERS Safety Report 5242768-0 (Version None)
Quarter: 2007Q1

REPORT INFORMATION
  Report Type: 
  Country: None (occurrence: None)
  Receive Date: 20070214
  Receipt Date: 20070201
  Transmission Date: 20070707
  Serious: Yes (Hospitalization, Other)
  Sender: FDA-Public Use
  Company Number: PAR_1341_2007

PATIENT
  Age: 31 Year
  Sex: Male

DRUGS (3)
  1. IBUPROFEN [Suspect]
     Dosage: 8000 MG ONCE PO
     Route: 048
  2. METHYLPHENIDATE HCL [Suspect]
     Dosage: 1000 MG ONCE PO
     Route: 048
  3. 2 BOTTLES OF WINE [Suspect]

REACTIONS (5)
  - ALCOHOL POISONING [None]
  - HALLUCINATION [None]
  - MULTIPLE DRUG OVERDOSE [None]
  - SINUS TACHYCARDIA [None]
  - SYMPATHOMIMETIC EFFECT [None]
